FAERS Safety Report 15158528 (Version 1)
Quarter: 2018Q3

REPORT INFORMATION
  Report Type: Spontaneous
  Country: GB (occurrence: GB)
  Receive Date: 20180718
  Receipt Date: 20180718
  Transmission Date: 20181010
  Serious: Yes (Hospitalization)
  Sender: FDA-Public Use
  Company Number: PHHY2016GB187021

PATIENT
  Age: 52 Year
  Sex: Female

DRUGS (22)
  1. TRASTUZUMAB. [Suspect]
     Active Substance: TRASTUZUMAB
     Dosage: 672 MG, Q3W
     Route: 042
     Dates: start: 20160804
  2. TRASTUZUMAB EMTANSINE [Suspect]
     Active Substance: ADO-TRASTUZUMAB EMTANSINE
     Indication: HER-2 POSITIVE BREAST CANCER
     Dosage: 400 MG, Q3W
     Route: 042
     Dates: start: 20170112
  3. DOXYCYCLINE. [Concomitant]
     Active Substance: DOXYCYCLINE
     Indication: PYREXIA
     Dosage: 100 MG, UNK
     Route: 048
  4. CITALOPRAM [Concomitant]
     Active Substance: CITALOPRAM HYDROBROMIDE
     Indication: PRODUCT USED FOR UNKNOWN INDICATION
     Dosage: 40 MG, QD
     Route: 048
  5. FULVESTRANT. [Suspect]
     Active Substance: FULVESTRANT
     Indication: BREAST CANCER
     Dosage: 500 MG, Q4W
     Route: 030
     Dates: start: 20160721
  6. TAZOCIN [Concomitant]
     Active Substance: PIPERACILLIN SODIUM\TAZOBACTAM SODIUM
     Indication: PYREXIA
     Route: 042
  7. CAPECITABINE. [Suspect]
     Active Substance: CAPECITABINE
     Indication: BREAST CANCER
     Dosage: 3500 MG, Q3W
     Route: 048
     Dates: start: 20161122, end: 20170105
  8. PERTUZUMAB. [Suspect]
     Active Substance: PERTUZUMAB
     Indication: HER-2 POSITIVE BREAST CANCER
     Dosage: 840 MG,(LOADING DOSE)
     Route: 042
  9. PERTUZUMAB. [Suspect]
     Active Substance: PERTUZUMAB
     Dosage: 420 MG, Q3W
     Route: 042
     Dates: start: 20160804
  10. FOSTAIR [Concomitant]
     Active Substance: BECLOMETHASONE\FORMOTEROL
     Indication: PRODUCT USED FOR UNKNOWN INDICATION
     Dosage: UNK (AS NEEDED)
     Route: 065
  11. DOCETAXEL. [Suspect]
     Active Substance: DOCETAXEL
     Dosage: 120 MG, Q3W
     Route: 042
     Dates: start: 20160526
  12. TRASTUZUMAB. [Suspect]
     Active Substance: TRASTUZUMAB
     Indication: HER-2 POSITIVE BREAST CANCER
     Dosage: 903 MG, LOADING DOSE
     Route: 042
  13. PERTUZUMAB. [Suspect]
     Active Substance: PERTUZUMAB
     Dosage: 420 MG, Q3W (MAINTENANCE DOSE)
     Route: 042
     Dates: start: 20160324
  14. LOPERAMIDE [Concomitant]
     Active Substance: LOPERAMIDE
     Dosage: 2 MG, QD
     Route: 048
     Dates: start: 20161206, end: 20161209
  15. CODEINE [Concomitant]
     Active Substance: CODEINE
     Indication: DIARRHOEA
     Dosage: 240 MG, QD
     Route: 048
     Dates: start: 20161209, end: 20161214
  16. DOCETAXEL. [Suspect]
     Active Substance: DOCETAXEL
     Indication: BREAST CANCER
     Dosage: 160 MG, Q3W
     Route: 042
     Dates: start: 20160302
  17. TRASTUZUMAB. [Suspect]
     Active Substance: TRASTUZUMAB
     Dosage: 672 MG, QW (MAINTENANCE DOSE)
     Route: 042
     Dates: start: 20160324
  18. LOPERAMIDE [Concomitant]
     Active Substance: LOPERAMIDE
     Dosage: 16 MG, QD
     Route: 048
     Dates: start: 20161210, end: 20161214
  19. LOPERAMIDE [Concomitant]
     Active Substance: LOPERAMIDE
     Dosage: 4 MG, QD
     Route: 048
     Dates: start: 20161210, end: 20161214
  20. CODEINE [Concomitant]
     Active Substance: CODEINE
     Dosage: 60 MG, UNK
     Route: 048
     Dates: start: 20161209, end: 20161214
  21. LOPERAMIDE [Concomitant]
     Active Substance: LOPERAMIDE
     Indication: DIARRHOEA
     Dosage: 8 MG, QD
     Route: 048
     Dates: start: 20161206, end: 20161209
  22. OMEPRAZOLE. [Concomitant]
     Active Substance: OMEPRAZOLE
     Indication: PRODUCT USED FOR UNKNOWN INDICATION
     Dosage: 20 MG, QD
     Route: 048
     Dates: start: 2008

REACTIONS (6)
  - Fatigue [Not Recovered/Not Resolved]
  - Cough [Recovered/Resolved]
  - Cellulitis [Recovering/Resolving]
  - Urinary tract infection [Recovering/Resolving]
  - Streptococcus test positive [Recovered/Resolved]
  - Lower respiratory tract infection [Recovered/Resolved]

NARRATIVE: CASE EVENT DATE: 201606
